FAERS Safety Report 5628918-2 (Version None)
Quarter: 2008Q1

REPORT INFORMATION
  Report Type: 
  Country: None (occurrence: None)
  Receive Date: 20080213
  Receipt Date: 20080201
  Transmission Date: 20080703
  Serious: Yes (Other)
  Sender: FDA-Public Use
  Company Number: 2008S1000028

PATIENT
  Age: 54 Year
  Sex: Female
  Weight: 72.3 kg

DRUGS (1)
  1. INOMAX [Suspect]
     Indication: HYPOXIA
     Dosage: 20 PPM; CONT; INH
     Route: 055
     Dates: start: 20080201, end: 20080201

REACTIONS (2)
  - CARDIO-RESPIRATORY ARREST [None]
  - DEVICE FAILURE [None]
